FAERS Safety Report 24730992 (Version 2)
Quarter: 2025Q1

REPORT INFORMATION
  Report Type: Spontaneous
  Country: TR (occurrence: TR)
  Receive Date: 20241213
  Receipt Date: 20250101
  Transmission Date: 20250408
  Serious: Yes (Congenital Anomaly, Other)
  Sender: UCB
  Company Number: TR-UCBSA-2024065169

PATIENT
  Sex: Male

DRUGS (1)
  1. LACOSAMIDE [Suspect]
     Active Substance: LACOSAMIDE
     Indication: Seizure
     Route: 064

REACTIONS (2)
  - Syndactyly [Unknown]
  - Maternal exposure during pregnancy [Unknown]
